FAERS Safety Report 7626593-9 (Version None)
Quarter: 2011Q3

REPORT INFORMATION
  Report Type: 
  Country: None (occurrence: None)
  Receive Date: 20110721
  Receipt Date: 20110712
  Transmission Date: 20111222
  Serious: Yes (Other)
  Sender: FDA-Public Use
  Company Number: US-GLAXOSMITHKLINE-B0733976A

PATIENT
  Age: 16 Year
  Sex: Female

DRUGS (1)
  1. BECLOMETHASONE DIPROPIONATE [Suspect]
     Indication: ASTHMA
     Route: 055
     Dates: start: 20100101

REACTIONS (10)
  - IMPULSIVE BEHAVIOUR [None]
  - GRANDIOSITY [None]
  - INSOMNIA [None]
  - EUPHORIC MOOD [None]
  - MANIA [None]
  - INTENTIONAL SELF-INJURY [None]
  - TACHYPHRENIA [None]
  - ENERGY INCREASED [None]
  - FLIGHT OF IDEAS [None]
  - PRESSURE OF SPEECH [None]
